FAERS Safety Report 19323458 (Version 2)
Quarter: 2021Q4

REPORT INFORMATION
  Report Type: Report from Study
  Country: US (occurrence: US)
  Receive Date: 20210528
  Receipt Date: 20211014
  Transmission Date: 20220303
  Serious: Yes (Hospitalization)
  Sender: FDA-Public Use
  Company Number: US-ROCHE-2833709

PATIENT
  Age: 69 Year
  Sex: Female
  Weight: 62.7 kg

DRUGS (4)
  1. BEVACIZUMAB [Suspect]
     Active Substance: BEVACIZUMAB
     Indication: Non-small cell lung cancer
     Route: 065
  2. PEMETREXED [Suspect]
     Active Substance: PEMETREXED
     Indication: Non-small cell lung cancer
     Dosage: 825 MG IN NS 100 ML
     Route: 065
     Dates: start: 20201210, end: 20210429
  3. TYLENOL [Concomitant]
     Active Substance: ACETAMINOPHEN
  4. TRAMADOL [Concomitant]
     Active Substance: TRAMADOL

REACTIONS (5)
  - Pyrexia [Unknown]
  - Back pain [Unknown]
  - Pain in extremity [Unknown]
  - Oesophageal motility disorder [Unknown]
  - Hypoxia [Unknown]

NARRATIVE: CASE EVENT DATE: 20210509
